FAERS Safety Report 5366188-3 (Version None)
Quarter: 2007Q2

REPORT INFORMATION
  Report Type: 
  Country: None (occurrence: None)
  Receive Date: 20070611
  Receipt Date: 20070117
  Transmission Date: 20071010
  Serious: Yes (Other)
  Sender: FDA-Public Use
  Company Number: USA-2007-0026233

PATIENT
  Age: 37 Year
  Sex: Male

DRUGS (2)
  1. OXYCONTIN [Suspect]
     Indication: DRUG USE FOR UNKNOWN INDICATION
     Dosage: ORAL
     Route: 048
  2. MARIJUANA (CANNABIS) [Suspect]
     Indication: PAIN

REACTIONS (2)
  - DRUG INEFFECTIVE [None]
  - SUBSTANCE ABUSE [None]
